FAERS Safety Report 12551942 (Version 1)
Quarter: 2016Q3

REPORT INFORMATION
  Report Type: Spontaneous
  Country: US (occurrence: None)
  Receive Date: 20160712
  Receipt Date: 20160712
  Transmission Date: 20161109
  Serious: Yes (Disabling)
  Sender: FDA-Public Use
  Company Number: None

PATIENT
  Age: 47 Year
  Sex: Female
  Weight: 79.38 kg

DRUGS (9)
  1. PERFECT ORIGINS LIVECLEAN FORMULA NSF CERTIFIED [Concomitant]
  2. OREGANO OIL DROPS [Concomitant]
  3. ACIDOPHILUS [Concomitant]
     Active Substance: LACTOBACILLUS ACIDOPHILUS
  4. LISINOPRIL. [Concomitant]
     Active Substance: LISINOPRIL
  5. MALARONE [Suspect]
     Active Substance: ATOVAQUONE\PROGUANIL HYDROCHLORIDE
     Indication: MALARIA PROPHYLAXIS
     Dosage: IN THE MORNING
     Route: 048
     Dates: start: 20130925, end: 20160205
  6. AMWAY- NUTRILIGHT SUPPLEMENTS NSF CERTIFIED [Concomitant]
  7. NORETHINDRONE ACETATE. [Concomitant]
     Active Substance: NORETHINDRONE ACETATE
  8. MEDIHERB [Concomitant]
  9. LUNG SUPPORT TIBETAN HERALS [Concomitant]

REACTIONS (2)
  - Blindness unilateral [None]
  - Optic nerve injury [None]

NARRATIVE: CASE EVENT DATE: 20140102
